FAERS Safety Report 7772334-4 (Version None)
Quarter: 2011Q3

REPORT INFORMATION
  Report Type: 
  Country: None (occurrence: None)
  Receive Date: 20110922
  Receipt Date: 20090721
  Transmission Date: 20111222
  Serious: No
  Sender: FDA-Public Use
  Company Number: US-ASTRAZENECA-2010SE54127

PATIENT
  Age: 60 Year
  Sex: Male

DRUGS (5)
  1. TRAZODONE HYDROCHLORIDE [Concomitant]
     Dates: start: 20000101
  2. DEPAKOTE [Concomitant]
  3. BENZTROPINE MESYLATE [Concomitant]
     Dates: start: 20000101
  4. SEROQUEL [Suspect]
     Route: 048
     Dates: start: 20000101
  5. EFFEXOR [Concomitant]
     Dates: start: 20000101

REACTIONS (11)
  - TYPE 2 DIABETES MELLITUS [None]
  - HYPERLIPIDAEMIA [None]
  - FATIGUE [None]
  - HEPATIC STEATOSIS [None]
  - CORONARY ARTERY DISEASE [None]
  - GASTROOESOPHAGITIS [None]
  - OVERWEIGHT [None]
  - RHINITIS ALLERGIC [None]
  - HYPERCHOLESTEROLAEMIA [None]
  - DIZZINESS [None]
  - PAIN IN EXTREMITY [None]
